FAERS Safety Report 4919701-1 (Version None)
Quarter: 2006Q1

REPORT INFORMATION
  Report Type: 
  Country: None (occurrence: None)
  Receive Date: 20060217
  Receipt Date: 20060209
  Transmission Date: 20060701
  Serious: Yes (Hospitalization, Other)
  Sender: FDA-Public Use
  Company Number: HQWYE331609SEP05

PATIENT
  Age: 7 Year
  Sex: Male

DRUGS (3)
  1. CHILDREN'S ADVIL [Suspect]
     Indication: PYREXIA
     Dosage: ONE DOSE FOR 24 KG EVERY 6 HOURS, ORAL
     Route: 048
     Dates: start: 20050811, end: 20050814
  2. ACETAMINOPHEN [Suspect]
     Indication: PYREXIA
     Dosage: ONE DOSE FOR 24 KG EVERY 6 HOURS
     Dates: start: 20050811, end: 20050814
  3. VOMEX A - SLOW RELEASE (DIMENHYDRINATE/PYRIDOXINE HYDROCHLORIDE, ) [Suspect]

REACTIONS (5)
  - CHOLESTASIS [None]
  - HAEMOGLOBIN DECREASED [None]
  - PRURITUS [None]
  - RASH SCARLATINIFORM [None]
  - SKIN EXFOLIATION [None]
